FAERS Safety Report 4266844-4 (Version None)
Quarter: 2004Q1

REPORT INFORMATION
  Report Type: 
  Country: None (occurrence: None)
  Receive Date: 20040108
  Receipt Date: 20040108
  Transmission Date: 20041129
  Serious: Yes (Other)
  Sender: FDA-Public Use
  Company Number: None

PATIENT
  Sex: Female

DRUGS (5)
  1. EFFEXOR XR [Suspect]
     Indication: PAIN IN EXTREMITY
     Dates: start: 20031013, end: 20031226
  2. OXYCONTIN [Concomitant]
  3. ROXICODONE [Concomitant]
  4. BACLOFEN [Concomitant]
  5. MOBIC [Concomitant]

REACTIONS (1)
  - PAIN IN EXTREMITY [None]
